FAERS Safety Report 5897321-2 (Version None)
Quarter: 2008Q3

REPORT INFORMATION
  Report Type: 
  Country: None (occurrence: None)
  Receive Date: 20080908
  Receipt Date: 20080616
  Transmission Date: 20090109
  Serious: Yes (Other)
  Sender: FDA-Public Use
  Company Number: 2008015274

PATIENT
  Age: 36 Year
  Sex: Female
  Weight: 80.7 kg

DRUGS (1)
  1. ZYRTEC-D 12 HOUR [Suspect]
     Indication: HYPERSENSITIVITY
     Dosage: 1 TABLET 2 X ADAY, ORAL
     Route: 048
     Dates: start: 20080324, end: 20080326

REACTIONS (1)
  - HYPERSENSITIVITY [None]
